FAERS Safety Report 15820786 (Version 1)
Quarter: 2019Q1

REPORT INFORMATION
  Report Type: Spontaneous
  Country: US (occurrence: US)
  Receive Date: 20190114
  Receipt Date: 20190114
  Transmission Date: 20190417
  Serious: Yes (Other)
  Sender: FDA-Public Use
  Company Number: US-SA-2019SA009078

PATIENT
  Sex: Female

DRUGS (26)
  1. CETIRIZINE HCL [Concomitant]
     Active Substance: CETIRIZINE HYDROCHLORIDE
  2. DEXILANT [Concomitant]
     Active Substance: DEXLANSOPRAZOLE
  3. ALENDRONATE SODIUM. [Concomitant]
     Active Substance: ALENDRONATE SODIUM
  4. HYDROCHLOROTHIAZIDE. [Concomitant]
     Active Substance: HYDROCHLOROTHIAZIDE
  5. MONTELUKAST SODIUM. [Concomitant]
     Active Substance: MONTELUKAST SODIUM
  6. GEMFIBROZIL. [Concomitant]
     Active Substance: GEMFIBROZIL
  7. HYDROXYCHLOROQUINE SULFATE. [Concomitant]
     Active Substance: HYDROXYCHLOROQUINE SULFATE
  8. RANITIDINE. [Concomitant]
     Active Substance: RANITIDINE
  9. VOLTAREN [DICLOFENAC] [Concomitant]
     Active Substance: DICLOFENAC SODIUM
  10. NOVOLOG [Concomitant]
     Active Substance: INSULIN ASPART
  11. HYDROCORTISONE. [Concomitant]
     Active Substance: HYDROCORTISONE
  12. JANUVIA [Concomitant]
     Active Substance: SITAGLIPTIN PHOSPHATE
  13. KEVZARA [Suspect]
     Active Substance: SARILUMAB
     Dosage: 200 MG, QOW
     Route: 058
     Dates: start: 20181218
  14. LEVEMIR [Concomitant]
     Active Substance: INSULIN DETEMIR
  15. CEVIMELINE HCL [Concomitant]
     Active Substance: CEVIMELINE HYDROCHLORIDE
  16. HYDROCORTISONE. [Concomitant]
     Active Substance: HYDROCORTISONE
  17. TYLENOL 8HR [Concomitant]
     Active Substance: ACETAMINOPHEN
  18. VITAMIN D [Concomitant]
     Active Substance: CHOLECALCIFEROL
  19. ATENOLOL. [Concomitant]
     Active Substance: ATENOLOL
  20. CEPHALEXIN AMEL [Concomitant]
  21. DIPHENHYDRAMIN [Concomitant]
     Active Substance: DIPHENHYDRAMINE
  22. EPIPEN [Concomitant]
     Active Substance: EPINEPHRINE
  23. ONDANSETRON HCL [Concomitant]
     Active Substance: ONDANSETRON HYDROCHLORIDE
  24. PROAIR HFA [Concomitant]
     Active Substance: ALBUTEROL SULFATE
  25. RESTASIS [Concomitant]
     Active Substance: CYCLOSPORINE
  26. VICTOZA [Concomitant]
     Active Substance: LIRAGLUTIDE

REACTIONS (3)
  - Injection site reaction [Not Recovered/Not Resolved]
  - Systemic infection [Not Recovered/Not Resolved]
  - Skin atrophy [Not Recovered/Not Resolved]
